FAERS Safety Report 9508941 (Version 2)
Quarter: 2014Q3

REPORT INFORMATION
  Report Type: Spontaneous
  Country: US (occurrence: US)
  Receive Date: 20130909
  Receipt Date: 20140908
  Transmission Date: 20150326
  Serious: No
  Sender: FDA-Public Use
  Company Number: US-BRISTOL-MYERS SQUIBB COMPANY-19082775

PATIENT
  Age: 53 Year
  Sex: Female
  Weight: 88.89 kg

DRUGS (1)
  1. ABILIFY [Suspect]
     Active Substance: ARIPIPRAZOLE
     Indication: DEPRESSION
     Dosage: RECENT DOSE 02JUL2013
     Dates: start: 20130615

REACTIONS (3)
  - Anxiety [Unknown]
  - Drug dose omission [Unknown]
  - Depression [Unknown]
